FAERS Safety Report 5234732-2 (Version None)
Quarter: 2007Q1

REPORT INFORMATION
  Report Type: 
  Country: None (occurrence: None)
  Receive Date: 20070209
  Receipt Date: 20070130
  Transmission Date: 20070707
  Serious: Yes (Death)
  Sender: FDA-Public Use
  Company Number: KR-PFIZER INC-2007002731

PATIENT
  Sex: Male
  Weight: 68 kg

DRUGS (2)
  1. ZYVOX [Suspect]
     Indication: ENTEROCOCCAL INFECTION
     Route: 042
     Dates: start: 20060619, end: 20060620
  2. MEROPENEM [Concomitant]
     Dosage: DAILY DOSE:3GRAM
     Route: 042
     Dates: start: 20060602, end: 20060620

REACTIONS (1)
  - PNEUMONIA [None]
